FAERS Safety Report 6445237-5 (Version None)
Quarter: 2009Q4

REPORT INFORMATION
  Report Type: 
  Country: None (occurrence: None)
  Receive Date: 20091118
  Receipt Date: 20091109
  Transmission Date: 20100525
  Serious: Yes (Hospitalization, Other)
  Sender: FDA-Public Use
  Company Number: BR-ASTRAZENECA-2009SE25666

PATIENT
  Age: 76 Year
  Sex: Male
  Weight: 76 kg

DRUGS (4)
  1. ZESTRIL [Suspect]
     Indication: HYPERTENSION
     Route: 048
     Dates: start: 19840101, end: 20091001
  2. SIMVASTATIN [Concomitant]
     Indication: BLOOD CHOLESTEROL INCREASED
     Route: 048
  3. PANTOPRAZOLE [Concomitant]
     Dosage: DAILY
     Route: 048
  4. SOMALGIN [Concomitant]
     Indication: CARDIOVASCULAR DISORDER
     Dosage: DAILY
     Route: 048

REACTIONS (2)
  - CARDIAC ARREST [None]
  - PROSTATE CANCER [None]
